FAERS Safety Report 7888235-7 (Version None)
Quarter: 2011Q4

REPORT INFORMATION
  Report Type: 
  Country: None (occurrence: None)
  Receive Date: 20111103
  Receipt Date: 20111004
  Transmission Date: 20120403
  Serious: No
  Sender: FDA-Public Use
  Company Number: US-BAYER-2011-097412

PATIENT
  Sex: Female

DRUGS (2)
  1. DROSPIRENONE AND ETHINYL ESTRADIOL [Suspect]
  2. SAFYRAL [Suspect]
     Indication: POLYCYSTIC OVARIES

REACTIONS (2)
  - ADVERSE DRUG REACTION [None]
  - ADVERSE EVENT [None]
